FAERS Safety Report 25742647 (Version 1)
Quarter: 2025Q3

REPORT INFORMATION
  Report Type: Spontaneous
  Country: EU (occurrence: EU)
  Receive Date: 20250830
  Receipt Date: 20250830
  Transmission Date: 20251020
  Serious: Yes (Hospitalization)
  Sender: MERCK SHARP & DOHME LLC
  Company Number: None

PATIENT
  Age: 15 Year
  Sex: Male

DRUGS (7)
  1. STROMECTOL [Suspect]
     Active Substance: IVERMECTIN
     Indication: Strongyloidiasis
     Route: 048
     Dates: start: 20250123, end: 20250123
  2. BILTRICIDE [Suspect]
     Active Substance: PRAZIQUANTEL
     Indication: Schistosomiasis
     Route: 048
     Dates: start: 20250127, end: 20250127
  3. LAROXYL 40 mg/ml, oral solution [Concomitant]
     Indication: Pain
     Route: 048
     Dates: start: 20250202
  4. LOVENOX 4000 IU anti-Xa/0.4 ml, solution for injection in pre-fille... [Concomitant]
     Indication: Thrombosis prophylaxis
     Route: 058
     Dates: start: 20250121, end: 20250127
  5. LOVENOX 4000 IU anti-Xa/0.4 ml, solution for injection in pre-fille... [Concomitant]
     Indication: Thrombosis prophylaxis
     Route: 058
     Dates: start: 20250204, end: 20250213
  6. OROZAMUDOL 50 mg, orally disintegrating tablet [Concomitant]
     Indication: Pain
     Route: 048
     Dates: start: 20250121
  7. DOLIPRANE [Concomitant]
     Active Substance: ACETAMINOPHEN
     Indication: Pain
     Route: 048
     Dates: start: 20250118

REACTIONS (1)
  - Hepatic cytolysis [Recovering/Resolving]

NARRATIVE: CASE EVENT DATE: 20250206
